FAERS Safety Report 4325005-0 (Version None)
Quarter: 2004Q1

REPORT INFORMATION
  Report Type: 
  Country: None (occurrence: None)
  Receive Date: 20040322
  Receipt Date: 20040305
  Transmission Date: 20041129
  Serious: Yes (Hospitalization)
  Sender: FDA-Public Use
  Company Number: DSA_24069_2004

PATIENT
  Age: 56 Year
  Sex: Female

DRUGS (8)
  1. LORAZEPAM [Suspect]
     Dosage: VAR PRN PO
     Route: 048
     Dates: end: 20030710
  2. EDRONAX [Suspect]
     Dosage: 4 MG QD PO
     Route: 048
     Dates: start: 20030618, end: 20030708
  3. REMERGIL [Suspect]
     Dosage: 60 MG QD PO
     Route: 048
     Dates: start: 20030708, end: 20030710
  4. REMERGIL [Suspect]
     Dosage: 45 MG QD PO
     Route: 048
     Dates: start: 20030618, end: 20030707
  5. REMERGIL [Suspect]
     Dosage: 60 MG QD PO
     Route: 048
     Dates: start: 20030610, end: 20030617
  6. RISPERDAL [Suspect]
     Dosage: 4 MG QD PO
     Route: 048
     Dates: start: 20030710, end: 20030714
  7. RISPERDAL [Suspect]
     Dosage: 3 MG QD PO
     Route: 048
     Dates: start: 20030709, end: 20030709
  8. RISPERDAL [Suspect]
     Dosage: 2 MG QD PO
     Route: 048
     Dates: start: 20030708, end: 20030708

REACTIONS (4)
  - DRUG INTERACTION [None]
  - RESTLESSNESS [None]
  - URINARY RETENTION [None]
  - WHITE BLOOD CELL COUNT INCREASED [None]
